FAERS Safety Report 5313961-3 (Version None)
Quarter: 2007Q2

REPORT INFORMATION
  Report Type: 
  Country: None (occurrence: None)
  Receive Date: 20070501
  Receipt Date: 20070423
  Transmission Date: 20071010
  Serious: Yes (Death, Hospitalization, Congenital Anomaly, Other)
  Sender: FDA-Public Use
  Company Number: GB-PFIZER INC-2006107270

PATIENT
  Sex: Female
  Weight: 3.61 kg

DRUGS (5)
  1. LUSTRAL [Suspect]
     Indication: DEPRESSION
     Route: 048
     Dates: start: 20060323, end: 20060914
  2. LUSTRAL [Suspect]
     Indication: ANXIETY
  3. LUSTRAL [Suspect]
     Indication: PANIC REACTION
  4. FLUOXETINE [Suspect]
     Indication: PANIC REACTION
  5. FLUOXETINE [Suspect]
     Indication: ANXIETY

REACTIONS (4)
  - CONGENITAL BRAIN DAMAGE [None]
  - DRUG EXPOSURE DURING PREGNANCY [None]
  - ENCEPHALITIS [None]
  - NEONATAL ASPHYXIA [None]
